FAERS Safety Report 9536163 (Version 1)
Quarter: 2013Q2

REPORT INFORMATION
  Report Type: Spontaneous
  Country: US (occurrence: None)
  Receive Date: 20130507
  Receipt Date: 20130507
  Transmission Date: 20140414
  Serious: No
  Sender: FDA-Public Use
  Company Number: PHEH2013US002601

PATIENT
  Age: 64 Year
  Sex: Male
  Weight: 68.9 kg

DRUGS (1)
  1. AFINITOR (RAD) [Suspect]
     Indication: METASTASES TO LUNG
     Route: 048

REACTIONS (1)
  - Blister [None]
